FAERS Safety Report 6149272-6 (Version None)
Quarter: 2009Q2

REPORT INFORMATION
  Report Type: 
  Country: None (occurrence: None)
  Receive Date: 20090406
  Receipt Date: 20090406
  Transmission Date: 20091009
  Serious: Yes (Life-Threatening, Disabling)
  Sender: FDA-Public Use
  Company Number: None

PATIENT
  Age: 38 Year
  Sex: Female
  Weight: 61.2356 kg

DRUGS (3)
  1. CYMBALTA [Suspect]
     Indication: ANXIETY
     Dosage: 30MG ONCE A DAY PO
     Route: 048
     Dates: start: 20070106, end: 20080910
  2. CYMBALTA [Suspect]
     Indication: BIPOLAR DISORDER
     Dosage: 30MG ONCE A DAY PO
     Route: 048
     Dates: start: 20070106, end: 20080910
  3. CYMBALTA [Suspect]
     Indication: DEPRESSION
     Dosage: 30MG ONCE A DAY PO
     Route: 048
     Dates: start: 20070106, end: 20080910

REACTIONS (24)
  - ABDOMINAL DISTENSION [None]
  - ALOPECIA [None]
  - ANXIETY [None]
  - AXILLARY MASS [None]
  - BODY TEMPERATURE INCREASED [None]
  - BONE PAIN [None]
  - CONSTIPATION [None]
  - DEPRESSION [None]
  - DYSPNOEA [None]
  - FATIGUE [None]
  - FEELING ABNORMAL [None]
  - FLATULENCE [None]
  - GASTROOESOPHAGEAL REFLUX DISEASE [None]
  - HAEMORRHOIDS [None]
  - HEADACHE [None]
  - IMPAIRED GASTRIC EMPTYING [None]
  - IMPAIRED WORK ABILITY [None]
  - INSOMNIA [None]
  - ORAL FUNGAL INFECTION [None]
  - PALPITATIONS [None]
  - RENAL FAILURE [None]
  - VIRAL INFECTION [None]
  - VOMITING [None]
  - WEIGHT INCREASED [None]
